FAERS Safety Report 22269761 (Version 1)
Quarter: 2023Q2

REPORT INFORMATION
  Report Type: Spontaneous
  Country: US (occurrence: US)
  Receive Date: 20230501
  Receipt Date: 20230501
  Transmission Date: 20230721
  Serious: No
  Sender: FDA-Public Use
  Company Number: US-IMMUNOCORE, LTD-2023-IMC-001490

PATIENT
  Sex: Male

DRUGS (2)
  1. KIMMTRAK [Suspect]
     Active Substance: TEBENTAFUSP-TEBN
     Indication: Product used for unknown indication
     Dosage: 20 MICROGRAM, DOSE 1
     Dates: start: 20220623, end: 20220623
  2. KIMMTRAK [Suspect]
     Active Substance: TEBENTAFUSP-TEBN
     Dosage: UNK, SINGLE DOSE 12
     Dates: start: 20220907, end: 20220907

REACTIONS (3)
  - Erythema [Recovered/Resolved]
  - Skin exfoliation [Unknown]
  - Fatigue [Recovered/Resolved]
